FAERS Safety Report 17371340 (Version 1)
Quarter: 2020Q1

REPORT INFORMATION
  Report Type: Spontaneous
  Country: US (occurrence: US)
  Receive Date: 20200205
  Receipt Date: 20200205
  Transmission Date: 20200409
  Serious: No
  Sender: FDA-Public Use
  Company Number: US-LUPIN PHARMACEUTICALS INC.-2019-06883

PATIENT
  Age: 83 Year
  Sex: Male
  Weight: 97.51 kg

DRUGS (7)
  1. OSELTAMIVIR PHOSPHATE CAPSULES USP, 30 MG (BASE) [Suspect]
     Active Substance: OSELTAMIVIR PHOSPHATE
     Indication: COUGH
  2. LASIX [Concomitant]
     Active Substance: FUROSEMIDE
     Indication: CHRONIC KIDNEY DISEASE
     Dosage: UNK
     Route: 065
  3. FUROSEMIDE. [Concomitant]
     Active Substance: FUROSEMIDE
     Indication: DIURETIC THERAPY
     Dosage: UNK
     Route: 065
  4. COUMADIN [Concomitant]
     Active Substance: WARFARIN SODIUM
     Indication: ANTICOAGULANT THERAPY
     Dosage: UNK
     Route: 065
  5. METOPROLOL. [Concomitant]
     Active Substance: METOPROLOL
     Indication: HYPERTENSION
     Dosage: UNK
     Route: 065
  6. OSELTAMIVIR PHOSPHATE CAPSULES USP, 30 MG (BASE) [Suspect]
     Active Substance: OSELTAMIVIR PHOSPHATE
     Indication: OROPHARYNGEAL PAIN
     Dosage: 30 MILLIGRAM, BID
     Route: 048
     Dates: start: 20191019
  7. OSELTAMIVIR PHOSPHATE CAPSULES USP, 30 MG (BASE) [Suspect]
     Active Substance: OSELTAMIVIR PHOSPHATE
     Indication: INFLUENZA LIKE ILLNESS

REACTIONS (2)
  - Nausea [Not Recovered/Not Resolved]
  - Abdominal discomfort [Not Recovered/Not Resolved]

NARRATIVE: CASE EVENT DATE: 20191020
